FAERS Safety Report 9319798 (Version 3)
Quarter: 2015Q2

REPORT INFORMATION
  Report Type: Spontaneous
  Country: US (occurrence: US)
  Receive Date: 20130530
  Receipt Date: 20150609
  Transmission Date: 20150821
  Serious: Yes (Hospitalization, Other)
  Sender: FDA-Public Use
  Company Number: US-BAYER-2013-066378

PATIENT
  Age: 22 Year
  Sex: Female

DRUGS (4)
  1. OCELLA [Suspect]
     Active Substance: DROSPIRENONE\ETHINYL ESTRADIOL
     Dosage: UNK
  2. YASMIN [Suspect]
     Active Substance: DROSPIRENONE\ETHINYL ESTRADIOL
  3. YAZ [Suspect]
     Active Substance: DROSPIRENONE\ETHINYL ESTRADIOL
     Dosage: UNK
  4. ADVIL [Concomitant]
     Active Substance: IBUPROFEN
     Dosage: UNK
     Dates: start: 20020812

REACTIONS (10)
  - Pelvic venous thrombosis [None]
  - Thrombosis [None]
  - Anxiety [None]
  - Deep vein thrombosis [None]
  - Deep vein thrombosis [None]
  - Pain [None]
  - Emotional distress [None]
  - Injury [None]
  - Vena cava thrombosis [None]
  - General physical health deterioration [None]

NARRATIVE: CASE EVENT DATE: 20020813
